FAERS Safety Report 11920826 (Version 2)
Quarter: 2016Q2

REPORT INFORMATION
  Report Type: Spontaneous
  Country: US (occurrence: US)
  Receive Date: 20160115
  Receipt Date: 20160616
  Transmission Date: 20160815
  Serious: Yes (Hospitalization, Other)
  Sender: FDA-Public Use
  Company Number: US-TAKEDA-2016TUS000578

PATIENT
  Age: 75 Year
  Sex: Male
  Weight: 108.39 kg

DRUGS (3)
  1. AZATHIOPRINE. [Suspect]
     Active Substance: AZATHIOPRINE
     Indication: COLITIS ULCERATIVE
     Dosage: 100 MG, QD
     Route: 065
     Dates: start: 2005, end: 201501
  2. ENTYVIO [Suspect]
     Active Substance: VEDOLIZUMAB
     Indication: COLITIS ULCERATIVE
     Dosage: 300 MG, UNK
     Route: 042
     Dates: start: 20150206, end: 20151030
  3. AZATHIOPRINE. [Suspect]
     Active Substance: AZATHIOPRINE
     Dosage: 200 MG, QD
     Route: 065
     Dates: end: 201604

REACTIONS (1)
  - Diffuse large B-cell lymphoma [Recovered/Resolved with Sequelae]

NARRATIVE: CASE EVENT DATE: 20151115
